FAERS Safety Report 6716983-0 (Version None)
Quarter: 2010Q2

REPORT INFORMATION
  Report Type: 
  Country: None (occurrence: None)
  Receive Date: 20100506
  Receipt Date: 20100506
  Transmission Date: 20101027
  Serious: No
  Sender: FDA-Public Use
  Company Number: None

PATIENT
  Age: 40 Year
  Sex: Female
  Weight: 76.2043 kg

DRUGS (1)
  1. NOVO NORDISK A/S [Suspect]
     Indication: DIABETES MELLITUS
     Dosage: 18 UNITS DAILY (AT NIGHT) 3 WEEKS BEFORE 3-9-10

REACTIONS (12)
  - BLOOD GLUCOSE DECREASED [None]
  - CONTUSION [None]
  - CONVULSION [None]
  - DECREASED APPETITE [None]
  - DIZZINESS [None]
  - DYSPNOEA [None]
  - HYPERHIDROSIS [None]
  - INCREASED APPETITE [None]
  - MOANING [None]
  - NIGHTMARE [None]
  - PALLOR [None]
  - WEIGHT DECREASED [None]
